FAERS Safety Report 7652597-6 (Version None)
Quarter: 2011Q3

REPORT INFORMATION
  Report Type: 
  Country: None (occurrence: None)
  Receive Date: 20110728
  Receipt Date: 20110719
  Transmission Date: 20111222
  Serious: Yes (Other)
  Sender: FDA-Public Use
  Company Number: ACO_25612_2011

PATIENT
  Age: 57 Year
  Sex: Female
  Weight: 95.2 kg

DRUGS (6)
  1. LUNESTA [Concomitant]
  2. AMPYRA [Suspect]
     Indication: GAIT DISTURBANCE
     Dosage: 10 MG, BID, ORAL
     Route: 048
     Dates: start: 20110301, end: 20110707
  3. CYMBALTA [Concomitant]
  4. MULTIVITAMIN /00831701/ (VITAMINS NOS) [Concomitant]
  5. REBIF [Concomitant]
  6. CALCIUM (CALCIUM) [Concomitant]

REACTIONS (10)
  - PERIORBITAL HAEMATOMA [None]
  - LACERATION [None]
  - CONVULSION [None]
  - SYNCOPE [None]
  - FALL [None]
  - FEELING ABNORMAL [None]
  - DIZZINESS [None]
  - THERAPEUTIC RESPONSE UNEXPECTED [None]
  - HEAD INJURY [None]
  - CONTUSION [None]
